FAERS Safety Report 9556105 (Version 1)
Quarter: 2013Q3

REPORT INFORMATION
  Report Type: Spontaneous
  Country: US (occurrence: US)
  Receive Date: 20130926
  Receipt Date: 20130926
  Transmission Date: 20140515
  Serious: Yes (Hospitalization)
  Sender: FDA-Public Use
  Company Number: US-SANOFI-AVENTIS-2013SA094273

PATIENT
  Age: 41 Year
  Sex: Female
  Weight: 126.55 kg

DRUGS (13)
  1. LASIX [Suspect]
     Indication: PAIN IN EXTREMITY
     Route: 065
  2. LYRICA [Suspect]
     Indication: FIBROMYALGIA
     Route: 065
     Dates: start: 2013
  3. IBUPROFEN [Suspect]
     Indication: PAIN
     Route: 065
  4. IBUPROFEN [Suspect]
     Indication: FATIGUE
     Route: 065
  5. IBUPROFEN [Suspect]
     Indication: INFLUENZA
     Route: 065
  6. IBUPROFEN [Suspect]
     Indication: BONE PAIN
     Route: 065
  7. IBUPROFEN [Suspect]
     Indication: MYALGIA
     Route: 065
  8. KLONOPIN [Concomitant]
     Indication: ANXIETY
     Route: 065
  9. KLONOPIN [Concomitant]
     Indication: PANIC ATTACK
     Route: 065
  10. LAMICTAL [Concomitant]
     Indication: AFFECTIVE DISORDER
     Route: 065
  11. TRILEPTAL [Concomitant]
     Indication: BIPOLAR DISORDER
     Route: 065
  12. ZOLOFT [Concomitant]
     Indication: DEPRESSION
     Route: 065
  13. BACLOFEN [Concomitant]
     Indication: MUSCLE SPASMS
     Route: 065

REACTIONS (12)
  - Dyspnoea [Unknown]
  - Chest pain [Unknown]
  - Swelling [Unknown]
  - Blood triglycerides increased [Unknown]
  - Pain [Not Recovered/Not Resolved]
  - Fatigue [Not Recovered/Not Resolved]
  - Influenza [Not Recovered/Not Resolved]
  - Pain in extremity [Not Recovered/Not Resolved]
  - Bone pain [Not Recovered/Not Resolved]
  - Myalgia [Not Recovered/Not Resolved]
  - Hypokalaemia [Unknown]
  - Drug ineffective [Unknown]
